FAERS Safety Report 25764142 (Version 1)
Quarter: 2025Q3

REPORT INFORMATION
  Report Type: Spontaneous
  Country: JP (occurrence: JP)
  Receive Date: 20250905
  Receipt Date: 20250905
  Transmission Date: 20251020
  Serious: Yes (Death)
  Sender: ROCHE
  Company Number: JP-CHUGAI-2025028480

PATIENT
  Age: 72 Year
  Sex: Male
  Weight: 79.4 kg

DRUGS (1)
  1. ROZLYTREK [Suspect]
     Active Substance: ENTRECTINIB
     Indication: Cholangiocarcinoma
     Route: 048
     Dates: start: 20210922, end: 20210923

REACTIONS (1)
  - Disease progression [Fatal]
